FAERS Safety Report 15393367 (Version 2)
Quarter: 2022Q1

REPORT INFORMATION
  Report Type: Spontaneous
  Country: CA (occurrence: CA)
  Receive Date: 20180917
  Receipt Date: 20220318
  Transmission Date: 20220423
  Serious: Yes (Disabling, Other)
  Sender: FDA-Public Use
  Company Number: CA-PURDUE PHARMA-CAN-2018-0008969

PATIENT
  Age: 40 Year
  Sex: Female

DRUGS (54)
  1. HYDROMORPHONE [Interacting]
     Active Substance: HYDROMORPHONE
     Indication: Product used for unknown indication
     Dosage: 4.5 MG, BID
     Route: 065
  2. TRAMADOL HYDROCHLORIDE [Interacting]
     Active Substance: TRAMADOL HYDROCHLORIDE
     Indication: Product used for unknown indication
     Dosage: UNK, BID
     Route: 065
  3. XYREM [Interacting]
     Active Substance: SODIUM OXYBATE
     Indication: Fibromyalgia
     Dosage: 12.75 G, DAILY
     Route: 048
  4. XYREM [Interacting]
     Active Substance: SODIUM OXYBATE
     Dosage: 10 G, DAILY
     Route: 048
  5. XYREM [Interacting]
     Active Substance: SODIUM OXYBATE
     Dosage: 11 G, DAILY
     Route: 048
  6. XYREM [Interacting]
     Active Substance: SODIUM OXYBATE
     Dosage: 12 G, DAILY
     Route: 048
  7. XYREM [Interacting]
     Active Substance: SODIUM OXYBATE
     Dosage: 3.5 G, BID
     Route: 048
  8. XYREM [Interacting]
     Active Substance: SODIUM OXYBATE
     Dosage: 3.75 G, BID
     Route: 048
  9. XYREM [Interacting]
     Active Substance: SODIUM OXYBATE
     Dosage: 4.5 G, BID
     Route: 048
  10. XYREM [Interacting]
     Active Substance: SODIUM OXYBATE
     Dosage: 8 G, DAILY
     Route: 048
  11. XYREM [Interacting]
     Active Substance: SODIUM OXYBATE
     Dosage: 2.25 G, BID
     Route: 048
  12. XYREM [Interacting]
     Active Substance: SODIUM OXYBATE
     Dosage: 3 G, BID
     Route: 048
  13. XYREM [Interacting]
     Active Substance: SODIUM OXYBATE
     Dosage: 11.25 G, DAILY
     Route: 048
  14. XYREM [Interacting]
     Active Substance: SODIUM OXYBATE
     Dosage: 4.5 G, BID
     Route: 048
  15. XYREM [Interacting]
     Active Substance: SODIUM OXYBATE
     Dosage: 5 G, BID
     Route: 048
  16. XYREM [Interacting]
     Active Substance: SODIUM OXYBATE
     Dosage: 4.5 G, BID
     Route: 048
  17. XYREM [Interacting]
     Active Substance: SODIUM OXYBATE
     Dosage: 3 G, BID
     Route: 048
  18. XYREM [Interacting]
     Active Substance: SODIUM OXYBATE
     Dosage: 2.25 G, BID
     Route: 048
  19. XYREM [Interacting]
     Active Substance: SODIUM OXYBATE
     Dosage: 3.75 G, BID
     Route: 048
  20. XYREM [Interacting]
     Active Substance: SODIUM OXYBATE
     Dosage: 11.7 G, DAILY
     Route: 048
  21. XYREM [Interacting]
     Active Substance: SODIUM OXYBATE
     Dosage: 12 G, DAILY
     Route: 048
  22. XYREM [Interacting]
     Active Substance: SODIUM OXYBATE
     Dosage: 12.5 G, DAILY
     Route: 048
  23. XYREM [Interacting]
     Active Substance: SODIUM OXYBATE
     Dosage: 4 G, TID
     Route: 048
  24. XYREM [Interacting]
     Active Substance: SODIUM OXYBATE
     Dosage: UNK UNK, TID
     Route: 048
  25. XYREM [Interacting]
     Active Substance: SODIUM OXYBATE
     Dosage: 10 G, DAILY
     Route: 048
  26. XYREM [Interacting]
     Active Substance: SODIUM OXYBATE
     Dosage: 11 G, DAILY
     Route: 048
  27. XYREM [Interacting]
     Active Substance: SODIUM OXYBATE
     Dosage: 12 G, DAILY
     Route: 048
  28. XYREM [Interacting]
     Active Substance: SODIUM OXYBATE
     Dosage: 3.5 G, BID
     Route: 048
  29. XYREM [Interacting]
     Active Substance: SODIUM OXYBATE
     Dosage: 3.75 G, BID
     Route: 048
  30. XYREM [Interacting]
     Active Substance: SODIUM OXYBATE
     Dosage: 4.5 G, BID
     Route: 048
  31. XYREM [Interacting]
     Active Substance: SODIUM OXYBATE
     Dosage: 8 G, DAILY
     Route: 048
  32. XYREM [Interacting]
     Active Substance: SODIUM OXYBATE
     Dosage: 2.25 G, BID
     Route: 048
  33. XYREM [Interacting]
     Active Substance: SODIUM OXYBATE
     Dosage: 3 G, BID
     Route: 048
  34. XYREM [Interacting]
     Active Substance: SODIUM OXYBATE
     Dosage: 11.25 G, DAILY
     Route: 048
  35. XYREM [Interacting]
     Active Substance: SODIUM OXYBATE
     Dosage: 4.5 G, BID
     Route: 048
  36. XYREM [Interacting]
     Active Substance: SODIUM OXYBATE
     Dosage: 5 G, BID
     Route: 048
  37. XYREM [Interacting]
     Active Substance: SODIUM OXYBATE
     Dosage: 4.5 G, BID
     Route: 048
  38. XYREM [Interacting]
     Active Substance: SODIUM OXYBATE
     Dosage: 3 G, BID
     Route: 048
  39. XYREM [Interacting]
     Active Substance: SODIUM OXYBATE
     Dosage: 2.25 G, BID
     Route: 048
  40. XYREM [Interacting]
     Active Substance: SODIUM OXYBATE
     Dosage: 3.75 G, BID
     Route: 048
  41. XYREM [Interacting]
     Active Substance: SODIUM OXYBATE
     Dosage: 11.7 G, DAILY
     Route: 048
  42. XYREM [Interacting]
     Active Substance: SODIUM OXYBATE
     Dosage: 12 G, DAILY
     Route: 048
  43. XYREM [Interacting]
     Active Substance: SODIUM OXYBATE
     Dosage: 12.5 G, DAILY
     Route: 048
  44. XYREM [Interacting]
     Active Substance: SODIUM OXYBATE
     Dosage: 4 G, TID
     Route: 048
  45. XYREM [Interacting]
     Active Substance: SODIUM OXYBATE
     Dosage: UNK UNK, TID
     Route: 048
  46. ACETAMINOPHEN\OXYCODONE HYDROCHLORIDE [Concomitant]
     Active Substance: ACETAMINOPHEN\OXYCODONE HYDROCHLORIDE
     Indication: Product used for unknown indication
     Dosage: 1 DF, PRN
     Route: 065
  47. CIPRALEX [Concomitant]
     Active Substance: ESCITALOPRAM OXALATE
     Indication: Product used for unknown indication
     Dosage: 20 MG, DAILY
     Route: 065
  48. ERGOCALCIFEROL [Concomitant]
     Active Substance: ERGOCALCIFEROL
     Indication: Product used for unknown indication
     Dosage: 1 DF, DAILY
     Route: 065
  49. MODAFINIL [Concomitant]
     Active Substance: MODAFINIL
     Indication: Product used for unknown indication
     Dosage: 100 MG, BID
     Route: 065
  50. ROSUVASTATIN [Concomitant]
     Active Substance: ROSUVASTATIN
     Indication: Product used for unknown indication
     Dosage: 10 MG, DAILY
     Route: 065
  51. SYNTHROID [Concomitant]
     Active Substance: LEVOTHYROXINE SODIUM
     Indication: Product used for unknown indication
     Dosage: 0.137 MG, DAILY
     Route: 048
  52. TOPIRAMATE [Concomitant]
     Active Substance: TOPIRAMATE
     Indication: Product used for unknown indication
     Dosage: 200 MG, BID
     Route: 065
  53. VENTOLIN [Concomitant]
     Active Substance: ALBUTEROL SULFATE
     Indication: Product used for unknown indication
     Dosage: UNK, PRN
     Route: 065
  54. VITAMIN B COMPLEX [Concomitant]
     Active Substance: CYANOCOBALAMIN\DEXPANTHENOL\NIACINAMIDE\PYRIDOXINE HYDROCHLORIDE\RIBOFLAVIN 5^-PHOSPHATE SODIUM\THIA
     Indication: Product used for unknown indication
     Dosage: 1 DF, DAILY
     Route: 065

REACTIONS (17)
  - Aphonia [Not Recovered/Not Resolved]
  - Ear discomfort [Not Recovered/Not Resolved]
  - Ear infection [Not Recovered/Not Resolved]
  - General physical health deterioration [Not Recovered/Not Resolved]
  - Loss of personal independence in daily activities [Not Recovered/Not Resolved]
  - Middle ear effusion [Not Recovered/Not Resolved]
  - Movement disorder [Not Recovered/Not Resolved]
  - Nasopharyngitis [Not Recovered/Not Resolved]
  - Screaming [Not Recovered/Not Resolved]
  - Swelling [Not Recovered/Not Resolved]
  - Drug hypersensitivity [Not Recovered/Not Resolved]
  - Asthenia [Not Recovered/Not Resolved]
  - Drug interaction [Not Recovered/Not Resolved]
  - Insomnia [Not Recovered/Not Resolved]
  - Pain [Not Recovered/Not Resolved]
  - Peripheral swelling [Not Recovered/Not Resolved]
  - Product dose omission issue [Not Recovered/Not Resolved]
